FAERS Safety Report 20091328 (Version 1)
Quarter: 2021Q4

REPORT INFORMATION
  Report Type: Spontaneous
  Country: RU (occurrence: RU)
  Receive Date: 20211119
  Receipt Date: 20211119
  Transmission Date: 20220303
  Serious: Yes (Other)
  Sender: FDA-Public Use
  Company Number: RU-ABBVIE-21K-251-4168468-00

PATIENT
  Age: 18 Year
  Sex: Female
  Weight: 60 kg

DRUGS (1)
  1. VALPROIC ACID [Suspect]
     Active Substance: VALPROIC ACID
     Indication: Epilepsy
     Dosage: 288 MG BID
     Route: 048
     Dates: start: 20191114, end: 20191128

REACTIONS (3)
  - Generalised onset non-motor seizure [Recovering/Resolving]
  - Nausea [Recovering/Resolving]
  - Dry mouth [Recovering/Resolving]

NARRATIVE: CASE EVENT DATE: 20191114
